FAERS Safety Report 9035737 (Version 1)
Quarter: 2013Q1

REPORT INFORMATION
  Report Type: Report from Study
  Country: US (occurrence: US)
  Receive Date: 20130129
  Receipt Date: 20130129
  Transmission Date: 20140127
  Serious: No
  Sender: FDA-Public Use
  Company Number: US-ABBOTT-12P-163-0924750-00

PATIENT
  Sex: Female
  Weight: 124.85 kg

DRUGS (6)
  1. HUMIRA 40 MG/ 0.8 ML PRE-FILLED SYRINGE [Suspect]
     Indication: PSORIATIC ARTHROPATHY
     Dates: start: 201011, end: 201112
  2. HUMIRA 40 MG/ 0.8 ML PRE-FILLED SYRINGE [Suspect]
     Dates: start: 201202
  3. METHOTREXATE [Concomitant]
     Indication: PSORIATIC ARTHROPATHY
  4. ALEVE [Concomitant]
     Indication: PSORIATIC ARTHROPATHY
  5. UNKNOWN MEDICATION [Concomitant]
     Indication: DIABETES MELLITUS
  6. UNKNOWN MEDICATION [Concomitant]
     Indication: HYPERTENSION

REACTIONS (4)
  - Hair disorder [Recovered/Resolved]
  - Hair disorder [Recovered/Resolved]
  - Bacterial infection [Recovered/Resolved]
  - Pain [Recovered/Resolved]
